FAERS Safety Report 7201004-6 (Version None)
Quarter: 2010Q4

REPORT INFORMATION
  Report Type: 
  Country: None (occurrence: None)
  Receive Date: 20101228
  Receipt Date: 20101228
  Transmission Date: 20110411
  Serious: Yes (Hospitalization)
  Sender: FDA-Public Use
  Company Number: US-ABBOTT-10P-163-0692683-00

PATIENT
  Sex: Female
  Weight: 164.35 kg

DRUGS (13)
  1. LUPRON DEPOT [Suspect]
     Indication: ENDOMETRIOSIS
     Dates: start: 20100716, end: 20101011
  2. AYGESTIN [Suspect]
     Indication: ENDOMETRIOSIS
     Dates: end: 20101101
  3. PHENERGAN [Concomitant]
     Indication: NAUSEA
  4. VALIUM [Concomitant]
     Indication: TACHYCARDIA
  5. D3-50 [Concomitant]
     Indication: VITAMIN SUPPLEMENTATION
  6. ASPIRIN [Concomitant]
     Indication: CARDIOVASCULAR EVENT PROPHYLAXIS
  7. INDERAL [Concomitant]
     Indication: POSTURAL ORTHOSTATIC TACHYCARDIA SYNDROME
  8. AMBIEN CR [Concomitant]
     Indication: INSOMNIA
  9. RANITINDINE [Concomitant]
     Indication: GASTRIC PH DECREASED
  10. PATANOL [Concomitant]
     Indication: EYE ALLERGY
     Dosage: 0.1%
     Route: 047
  11. BENADRYL [Concomitant]
     Indication: HYPERSENSITIVITY
  12. FROVA [Concomitant]
     Indication: MIGRAINE
  13. PROTONIX [Concomitant]
     Indication: GASTRIC PH DECREASED

REACTIONS (5)
  - HEADACHE [None]
  - PAIN [None]
  - POST PROCEDURAL INFECTION [None]
  - TACHYCARDIA [None]
  - WEIGHT INCREASED [None]
